FAERS Safety Report 19404055 (Version 1)
Quarter: 2021Q2

REPORT INFORMATION
  Report Type: Spontaneous
  Country: ES (occurrence: ES)
  Receive Date: 20210610
  Receipt Date: 20210610
  Transmission Date: 20210717
  Serious: Yes (Hospitalization)
  Sender: FDA-Public Use
  Company Number: ES-ROCHE-2846966

PATIENT
  Age: 81 Year
  Sex: Female

DRUGS (5)
  1. LORMETAZEPAM [Concomitant]
     Active Substance: LORMETAZEPAM
     Indication: INSOMNIA
     Dosage: 1 MG?EFG TABLETS
     Route: 048
     Dates: start: 20100112
  2. IBANDRONIC ACID. [Suspect]
     Active Substance: IBANDRONIC ACID
     Indication: OSTEOPOROSIS
     Route: 048
     Dates: start: 20090206
  3. SIMVASTATINA [Concomitant]
     Active Substance: SIMVASTATIN
     Indication: TYPE IIA HYPERLIPIDAEMIA
     Dosage: 10 MG TABLETS?COATED WITH EFG FILM
     Route: 048
     Dates: start: 20201230
  4. PROLIA [Concomitant]
     Active Substance: DENOSUMAB
     Indication: OSTEOPOROSIS
     Dosage: 60 MG SOLUTION FOR INJECTION IN A?PRE?FILLED SYRINGE
     Route: 058
     Dates: start: 20140201
  5. CIDINE (SPAIN) [Concomitant]
     Active Substance: CINITAPRIDE TARTRATE
     Indication: ABDOMINAL PAIN
     Dosage: 1 MG / 5 ML ORAL SOLUTION
     Route: 048
     Dates: start: 20200914

REACTIONS (2)
  - Fibula fracture [Recovering/Resolving]
  - Atypical femur fracture [Recovering/Resolving]

NARRATIVE: CASE EVENT DATE: 20210519
